FAERS Safety Report 13368802 (Version 1)
Quarter: 2017Q1

REPORT INFORMATION
  Report Type: Spontaneous
  Country: US (occurrence: US)
  Receive Date: 20170324
  Receipt Date: 20170324
  Transmission Date: 20170429
  Serious: No
  Sender: FDA-Public Use
  Company Number: US-MALLINCKRODT-T201600948

PATIENT
  Sex: Female
  Weight: 63 kg

DRUGS (1)
  1. TEMAZEPAM. [Suspect]
     Active Substance: TEMAZEPAM
     Indication: INSOMNIA
     Dosage: 7.5 MG, QHS
     Route: 048

REACTIONS (2)
  - Therapy change [Not Recovered/Not Resolved]
  - Constipation [Not Recovered/Not Resolved]
